FAERS Safety Report 7011717-7 (Version None)
Quarter: 2010Q3

REPORT INFORMATION
  Report Type: 
  Country: None (occurrence: None)
  Receive Date: 20100923
  Receipt Date: 20090313
  Transmission Date: 20110219
  Serious: No
  Sender: FDA-Public Use
  Company Number: US-WYE-H08590509

PATIENT
  Sex: Female

DRUGS (3)
  1. PREMARIN [Suspect]
     Indication: NIGHT SWEATS
     Route: 048
     Dates: start: 20090101, end: 20090312
  2. MULTI-VITAMINS [Concomitant]
  3. LOVAZA [Concomitant]

REACTIONS (1)
  - YELLOW SKIN [None]
